FAERS Safety Report 8544646-8 (Version None)
Quarter: 2012Q2

REPORT INFORMATION
  Report Type: 
  Country: None (occurrence: None)
  Receive Date: 20120416
  Receipt Date: 20100310
  Transmission Date: 20120825
  Serious: Yes (Other)
  Sender: FDA-Public Use
  Company Number: PHHY2010US11603

PATIENT
  Sex: Female

DRUGS (2)
  1. DETROL [Concomitant]
  2. DIOVAN [Suspect]
     Indication: HYPERTENSION
     Dosage: 160 MG DAILY, ORAL
     Route: 048
     Dates: end: 20100201

REACTIONS (3)
  - EPISTAXIS [None]
  - VASCULAR CAUTERISATION [None]
  - HYPERTENSION [None]
